FAERS Safety Report 6570863-2 (Version None)
Quarter: 2010Q1

REPORT INFORMATION
  Report Type: 
  Country: None (occurrence: None)
  Receive Date: 20100203
  Receipt Date: 20100203
  Transmission Date: 20100710
  Serious: Yes (Other)
  Sender: FDA-Public Use
  Company Number: None

PATIENT
  Sex: Male
  Weight: 101.7 kg

DRUGS (2)
  1. DASATINIB 100 MG BRISTOL MYERS SQUIBB [Suspect]
     Indication: CHRONIC MYELOID LEUKAEMIA
     Dosage: 100 MG DAILY PO 50 MG DAILY PO
     Route: 048
     Dates: start: 20020729, end: 20090605
  2. DASATINIB 100 MG BRISTOL MYERS SQUIBB [Suspect]
     Indication: CHRONIC MYELOID LEUKAEMIA
     Dosage: 100 MG DAILY PO 50 MG DAILY PO
     Route: 048
     Dates: start: 20090605, end: 20100202

REACTIONS (13)
  - ANAEMIA [None]
  - APHTHOUS STOMATITIS [None]
  - ASTHENIA [None]
  - CARPAL TUNNEL SYNDROME [None]
  - DIARRHOEA [None]
  - DRUG TOXICITY [None]
  - DYSTONIA [None]
  - FLUSHING [None]
  - GYNAECOMASTIA [None]
  - INSOMNIA [None]
  - JOINT HYPEREXTENSION [None]
  - MUSCLE TWITCHING [None]
  - WEIGHT DECREASED [None]
